FAERS Safety Report 7522685-3 (Version None)
Quarter: 2011Q2

REPORT INFORMATION
  Report Type: 
  Country: None (occurrence: None)
  Receive Date: 20110603
  Receipt Date: 20110526
  Transmission Date: 20111010
  Serious: Yes (Other)
  Sender: FDA-Public Use
  Company Number: US-BAYER-2010-005562

PATIENT
  Age: 78 Year
  Sex: Female

DRUGS (6)
  1. ZYRTEC [Concomitant]
     Dosage: 10 MG
     Route: 048
  2. NEXAVAR [Suspect]
     Indication: RENAL CELL CARCINOMA
     Dosage: DAILY DOSE 400 MG
     Dates: start: 20101201, end: 20110219
  3. NEXAVAR [Suspect]
     Dosage: 400 MG, BID
     Dates: start: 20110301
  4. LEVOTHROID [Concomitant]
     Dosage: 125 MCG
     Route: 048
  5. SPIRIVA [Concomitant]
     Route: 055
  6. BIOTENE [Concomitant]
     Route: 048

REACTIONS (16)
  - APHAGIA [None]
  - SENSATION OF FOREIGN BODY [None]
  - PRURITUS [None]
  - CANDIDIASIS [None]
  - ALOPECIA [None]
  - THROMBOSIS [None]
  - FATIGUE [None]
  - DIARRHOEA [None]
  - RASH [None]
  - GLOSSODYNIA [None]
  - WEIGHT DECREASED [None]
  - BLOOD PRESSURE INCREASED [None]
  - ERYTHEMA [None]
  - DYSPHONIA [None]
  - DRY MOUTH [None]
  - PAIN IN EXTREMITY [None]
